FAERS Safety Report 5454618-8 (Version None)
Quarter: 2007Q3

REPORT INFORMATION
  Report Type: 
  Country: None (occurrence: None)
  Receive Date: 20070917
  Receipt Date: 20070907
  Transmission Date: 20080115
  Serious: Yes (Hospitalization)
  Sender: FDA-Public Use
  Company Number: HQWYE085410SEP07

PATIENT
  Age: 68 Year
  Sex: Male

DRUGS (13)
  1. TEMSIROLIMUS [Suspect]
     Indication: MULTIPLE MYELOMA
     Dosage: 15 MG/M2 WEEKLY
     Route: 065
     Dates: start: 20070612, end: 20070628
  2. ATORVASTATIN CALCIUM [Concomitant]
     Dosage: UNKNOWN
     Route: 065
  3. ENOXAPARIN SODIUM [Concomitant]
     Dosage: UNKNOWN
     Route: 065
  4. OXYCODONE HCL [Concomitant]
     Dosage: UNKNOWN
     Route: 065
  5. ACETAMINOPHEN [Concomitant]
     Dosage: 325-650 MG, FREQUENCY UNSPECIFIED
     Route: 065
  6. PREDNISONE [Concomitant]
     Dosage: 10 MG, FREQUENCY UNKNOWN
     Route: 065
  7. VALACYCLOVIR HCL [Concomitant]
     Dosage: UNKNOWN
     Route: 065
  8. ONDANSETRON HCL [Concomitant]
     Indication: NAUSEA
     Dosage: UNKNOWN
     Route: 065
  9. ONDANSETRON HCL [Concomitant]
     Indication: VOMITING
  10. METOPROLOL TARTRATE [Concomitant]
     Dosage: UNKNOWN
     Route: 065
  11. ZOLPIDEM TARTRATE [Concomitant]
     Dosage: UNKNOWN
     Route: 065
  12. VELCADE [Suspect]
     Indication: MULTIPLE MYELOMA
     Dosage: ^1.3 MG/M2 WEEKLY FOR 4^
     Route: 065
     Dates: start: 20070612, end: 20070828
  13. ACETAMINOPHEN AND OXYCODONE HCL [Concomitant]
     Dosage: UNKNOWN
     Route: 065

REACTIONS (3)
  - HAEMATOMA [None]
  - HAEMOGLOBIN DECREASED [None]
  - PLATELET COUNT DECREASED [None]
